FAERS Safety Report 11613394 (Version 2)
Quarter: 2015Q4

REPORT INFORMATION
  Report Type: Spontaneous
  Country: GB (occurrence: GB)
  Receive Date: 20151008
  Receipt Date: 20151009
  Transmission Date: 20160304
  Serious: Yes (Hospitalization)
  Sender: FDA-Public Use
  Company Number: PHFR2015GB007419

PATIENT
  Sex: Female

DRUGS (1)
  1. CLOZAPINE. [Suspect]
     Active Substance: CLOZAPINE
     Indication: MYOCARDITIS
     Dosage: 225 MG, QD (100 MG IN THE MORNING AND 125 MG AT NIGHT)
     Route: 048

REACTIONS (6)
  - Myocarditis [Recovering/Resolving]
  - Endocarditis [Recovering/Resolving]
  - Pneumonia [Unknown]
  - Pyrexia [Unknown]
  - Lower respiratory tract infection [Unknown]
  - Tachycardia [Unknown]

NARRATIVE: CASE EVENT DATE: 20150916
